FAERS Safety Report 8789020 (Version 3)
Quarter: 2013Q1

REPORT INFORMATION
  Report Type: Spontaneous
  Country: US (occurrence: US)
  Receive Date: 20120917
  Receipt Date: 20130123
  Transmission Date: 20140127
  Serious: Yes (Disabling)
  Sender: FDA-Public Use
  Company Number: US-009507513-1208USA008871

PATIENT
  Sex: Female
  Weight: 109.3 kg

DRUGS (4)
  1. VICTRELIS [Suspect]
     Dosage: 4 DF, TID
     Route: 048
     Dates: start: 20120504
  2. PEGASYS [Suspect]
  3. RIBASPHERE [Suspect]
  4. INTEGRA F [Concomitant]

REACTIONS (7)
  - Fatigue [Unknown]
  - Muscle spasms [Not Recovered/Not Resolved]
  - Pain [Not Recovered/Not Resolved]
  - White blood cell count decreased [Not Recovered/Not Resolved]
  - Sleep disorder [Not Recovered/Not Resolved]
  - Dyspnoea [Not Recovered/Not Resolved]
  - Anxiety [Not Recovered/Not Resolved]
